FAERS Safety Report 21267001 (Version 19)
Quarter: 2025Q1

REPORT INFORMATION
  Report Type: Report from Study
  Country: US (occurrence: US)
  Receive Date: 20220829
  Receipt Date: 20250326
  Transmission Date: 20250408
  Serious: Yes (Other)
  Sender: TAKEDA
  Company Number: US-TAKEDA-2022TUS059057

PATIENT
  Age: 56 Year
  Sex: Male

DRUGS (8)
  1. ADVATE [Suspect]
     Active Substance: ANTIHEMOPHILIC FACTOR, HUMAN RECOMBINANT
     Indication: Prophylaxis
     Dosage: 2500 INTERNATIONAL UNIT, QOD
  2. ADVATE [Suspect]
     Active Substance: ANTIHEMOPHILIC FACTOR, HUMAN RECOMBINANT
  3. ADVATE [Suspect]
     Active Substance: ANTIHEMOPHILIC FACTOR, HUMAN RECOMBINANT
  4. ADVATE [Suspect]
     Active Substance: ANTIHEMOPHILIC FACTOR, HUMAN RECOMBINANT
  5. ADVATE [Suspect]
     Active Substance: ANTIHEMOPHILIC FACTOR, HUMAN RECOMBINANT
  6. ADVATE [Suspect]
     Active Substance: ANTIHEMOPHILIC FACTOR, HUMAN RECOMBINANT
  7. ADVATE [Suspect]
     Active Substance: ANTIHEMOPHILIC FACTOR, HUMAN RECOMBINANT
  8. ADVATE [Suspect]
     Active Substance: ANTIHEMOPHILIC FACTOR, HUMAN RECOMBINANT

REACTIONS (18)
  - Haemorrhage [Recovered/Resolved]
  - Seizure [Not Recovered/Not Resolved]
  - Loss of consciousness [Unknown]
  - Haemoptysis [Unknown]
  - Eye contusion [Recovered/Resolved]
  - Haemarthrosis [Recovered/Resolved]
  - Haematochezia [Unknown]
  - COVID-19 [Unknown]
  - Fall [Recovered/Resolved]
  - Back injury [Recovered/Resolved]
  - Joint injury [Recovered/Resolved]
  - Joint swelling [Recovered/Resolved]
  - Head injury [Unknown]
  - Extra dose administered [Recovered/Resolved]
  - Faeces hard [Unknown]
  - Dyschezia [Unknown]
  - Arthralgia [Not Recovered/Not Resolved]
  - Headache [Recovered/Resolved]

NARRATIVE: CASE EVENT DATE: 20220805
